FAERS Safety Report 11029385 (Version 1)
Quarter: 2015Q2

REPORT INFORMATION
  Report Type: Spontaneous
  Country: GB (occurrence: GB)
  Receive Date: 20150415
  Receipt Date: 20150415
  Transmission Date: 20150821
  Serious: Yes (Other)
  Sender: FDA-Public Use
  Company Number: GB-CIPLA LTD.-2015GB02808

PATIENT

DRUGS (4)
  1. CISPLATIN. [Suspect]
     Active Substance: CISPLATIN
     Indication: TRANSITIONAL CELL CARCINOMA
     Dosage: 70 MG/M2, ON DAY 1
     Route: 042
  2. SUNITINIB [Suspect]
     Active Substance: SUNITINIB
     Dosage: 25 MG EACH DAY, ON DAYS 2-15
     Route: 048
  3. SUNITINIB [Suspect]
     Active Substance: SUNITINIB
     Indication: TRANSITIONAL CELL CARCINOMA
     Dosage: 37.5, EACH DAY ON DAYS 2-15
     Route: 048
  4. GEMCITABINE [Suspect]
     Active Substance: GEMCITABINE\GEMCITABINE HYDROCHLORIDE
     Indication: TRANSITIONAL CELL CARCINOMA
     Dosage: 1000 MG/M2, ON DAYS 1 AND 8
     Route: 042

REACTIONS (1)
  - Intestinal obstruction [Unknown]
